FAERS Safety Report 23798467 (Version 1)
Quarter: 2024Q2

REPORT INFORMATION
  Report Type: Spontaneous
  Country: CN (occurrence: CN)
  Receive Date: 20240430
  Receipt Date: 20240430
  Transmission Date: 20240715
  Serious: Yes (Other)
  Sender: FDA-Public Use
  Company Number: CN-PFIZER INC-PV202400054744

PATIENT
  Age: 83 Year
  Sex: Female
  Weight: 46 kg

DRUGS (3)
  1. NIRMATRELVIR\RITONAVIR [Interacting]
     Active Substance: NIRMATRELVIR\RITONAVIR
     Indication: COVID-19
     Dosage: [NIRMATRELVIR 300 MG]/[RITONAVIR 100 MG]; 2X/DAY
     Route: 048
     Dates: start: 20240408, end: 20240412
  2. RIVAROXABAN [Interacting]
     Active Substance: RIVAROXABAN
     Indication: Therapeutic procedure
     Dosage: 10 MG, 1X/DAY
     Route: 048
     Dates: start: 20240406, end: 20240412
  3. FELODIPINE [Concomitant]
     Active Substance: FELODIPINE
     Indication: Therapeutic procedure
     Dosage: 5 MG, 1X/DAY
     Route: 048
     Dates: start: 20240408, end: 20240411

REACTIONS (5)
  - Blood creatinine increased [Recovered/Resolved]
  - Blood urea increased [Recovered/Resolved]
  - Oliguria [Recovered/Resolved]
  - Oedema peripheral [Recovered/Resolved]
  - Labelled drug-drug interaction medication error [Unknown]

NARRATIVE: CASE EVENT DATE: 20240412
